FAERS Safety Report 20026702 (Version 2)
Quarter: 2021Q4

REPORT INFORMATION
  Report Type: Spontaneous
  Country: US (occurrence: US)
  Receive Date: 20211102
  Receipt Date: 20211112
  Transmission Date: 20220303
  Serious: No
  Sender: FDA-Public Use
  Company Number: US-AMGEN-USASP2021170898

PATIENT
  Age: 59 Year
  Sex: Female

DRUGS (3)
  1. AIMOVIG [Suspect]
     Active Substance: ERENUMAB-AOOE
     Indication: Neck pain
     Dosage: 140 MILLIGRAM, QMO
     Route: 065
     Dates: start: 20201012
  2. AIMOVIG [Suspect]
     Active Substance: ERENUMAB-AOOE
     Indication: Migraine
  3. AIMOVIG [Suspect]
     Active Substance: ERENUMAB-AOOE
     Indication: Off label use

REACTIONS (2)
  - Accidental exposure to product [Unknown]
  - Underdose [Unknown]

NARRATIVE: CASE EVENT DATE: 20211101
